FAERS Safety Report 5352591-4 (Version None)
Quarter: 2007Q2

REPORT INFORMATION
  Report Type: 
  Country: None (occurrence: None)
  Receive Date: 20070611
  Receipt Date: 20070420
  Transmission Date: 20071010
  Serious: Yes (Other)
  Sender: FDA-Public Use
  Company Number: US-SANOFI-SYNTHELABO-A03200702702

PATIENT
  Sex: Male
  Weight: 77.1 kg

DRUGS (6)
  1. CAPTOPRIL [Concomitant]
     Dosage: UNK
     Route: 048
  2. LIPITOR [Concomitant]
     Dosage: UNK
     Route: 048
  3. TOPROL-XL [Concomitant]
     Dosage: UNK
     Route: 048
  4. ASPIRIN [Concomitant]
     Dosage: UNK
     Route: 048
  5. PLAVIX [Suspect]
     Indication: CORONARY ARTERIAL STENT INSERTION
     Route: 048
     Dates: start: 20040101
  6. PLAVIX [Suspect]
     Route: 048

REACTIONS (3)
  - CARDIAC FLUTTER [None]
  - INTRACARDIAC THROMBUS [None]
  - VENTRICULAR EXTRASYSTOLES [None]
